FAERS Safety Report 4694119-8 (Version None)
Quarter: 2005Q2

REPORT INFORMATION
  Report Type: 
  Country: None (occurrence: None)
  Receive Date: 20050616
  Receipt Date: 20050616
  Transmission Date: 20051028
  Serious: Yes (Other)
  Sender: FDA-Public Use
  Company Number: None

PATIENT
  Sex: Male
  Weight: 105 kg

DRUGS (3)
  1. RITUXAN [Suspect]
     Indication: CHRONIC LYMPHOCYTIC LEUKAEMIA
     Dosage: 373 MG/M2 IV Q 21 DAYS
     Route: 042
     Dates: start: 20050418
  2. CYTOXAN [Suspect]
     Dosage: 600 MG/M2 IV Q 21 DAYS
     Route: 042
  3. PENTOSTATIN [Suspect]
     Dosage: 4 MG/M2 IV Q 21 DAYS
     Route: 042

REACTIONS (9)
  - BODY TEMPERATURE INCREASED [None]
  - COUGH [None]
  - DEHYDRATION [None]
  - DIARRHOEA [None]
  - FLUID OVERLOAD [None]
  - NAUSEA [None]
  - PLEURAL EFFUSION [None]
  - VOMITING [None]
  - WHEEZING [None]
